FAERS Safety Report 5230539-0 (Version None)
Quarter: 2007Q1

REPORT INFORMATION
  Report Type: 
  Country: None (occurrence: None)
  Receive Date: 20070206
  Receipt Date: 20070201
  Transmission Date: 20070707
  Serious: Yes (Hospitalization, Other)
  Sender: FDA-Public Use
  Company Number: 526

PATIENT
  Age: 54 Year
  Sex: Male
  Weight: 74.4 kg

DRUGS (25)
  1. FLOLAN [Suspect]
     Route: 042
  2. OXYGEN [Concomitant]
  3. CENTRUM [Concomitant]
     Dosage: 1TAB PER DAY
     Route: 048
  4. FOSAMAX [Concomitant]
     Dosage: 70MG WEEKLY
     Route: 065
  5. LASIX [Concomitant]
     Dosage: 80MG PER DAY
     Route: 048
  6. ACETAMINOPHEN [Concomitant]
     Dosage: 500MG AS REQUIRED
  7. COUMADIN [Concomitant]
     Dosage: 5MG WEEKLY
  8. COUMADIN [Concomitant]
     Dosage: 7.5MG SEE DOSAGE TEXT
  9. SILDENAFIL CITRATE [Concomitant]
     Dosage: 20MG THREE TIMES PER DAY
  10. LIPITOR [Concomitant]
     Dosage: 10MG PER DAY
  11. ARAVA [Concomitant]
     Dosage: 20MG PER DAY
  12. FOLIC ACID [Concomitant]
     Dosage: 1MG PER DAY
  13. FERROUS SULFATE TAB [Concomitant]
     Dosage: 325MG TWICE PER DAY
  14. NEXIUM [Concomitant]
     Dosage: 40MG PER DAY
  15. ALTACE [Concomitant]
     Dosage: 5MG TWICE PER DAY
  16. DIGOXIN [Concomitant]
     Dosage: 250MCG PER DAY
  17. FLOVENT [Concomitant]
     Dosage: 2PUFF TWICE PER DAY
     Route: 045
  18. VITAMIN D [Concomitant]
     Dosage: 50000UNIT WEEKLY
  19. ARTHROTEC [Concomitant]
     Dosage: 50MG TWICE PER DAY
  20. TRACLEER [Concomitant]
     Dosage: 125MG TWICE PER DAY
  21. METHOTREXATE [Concomitant]
     Dosage: 20MG WEEKLY
     Route: 048
  22. CALCIUM [Concomitant]
     Dosage: 500MG TWICE PER DAY
  23. LOVENOX [Concomitant]
     Dosage: 30MG TWICE PER DAY
     Route: 058
  24. CEFTRIAXONE [Concomitant]
     Dosage: 1G TWICE PER DAY
     Route: 042
  25. OXYCONTIN [Concomitant]
     Dosage: 10MG TWICE PER DAY

REACTIONS (2)
  - CEREBRAL ARTERY EMBOLISM [None]
  - EMBOLISM [None]
